FAERS Safety Report 9220925 (Version 1)
Quarter: 2013Q2

REPORT INFORMATION
  Report Type: Spontaneous
  Country: JP (occurrence: JP)
  Receive Date: 20130409
  Receipt Date: 20130409
  Transmission Date: 20140414
  Serious: Yes (Hospitalization)
  Sender: FDA-Public Use
  Company Number: JP-GLAXOSMITHKLINE-B0869850A

PATIENT
  Age: 22 Year
  Sex: Female

DRUGS (4)
  1. LAMICTAL [Suspect]
     Indication: BIPOLAR I DISORDER
     Dosage: 10MG PER DAY
     Route: 048
     Dates: start: 20130125, end: 20130216
  2. DEPAKENE-R [Concomitant]
     Indication: BIPOLAR I DISORDER
     Dosage: 600MG PER DAY
     Route: 048
     Dates: start: 20120921, end: 20130218
  3. LEXAPRO [Concomitant]
     Indication: BIPOLAR I DISORDER
     Dosage: 5MG PER DAY
     Route: 048
     Dates: start: 20121222, end: 20130218
  4. SILECE [Concomitant]
     Indication: BIPOLAR I DISORDER
     Dosage: 2MG PER DAY
     Route: 048
     Dates: start: 20121110, end: 20130218

REACTIONS (7)
  - Drug reaction with eosinophilia and systemic symptoms [Recovered/Resolved]
  - Hepatitis acute [Unknown]
  - Liver disorder [Recovered/Resolved]
  - Drug eruption [Unknown]
  - Rash [Unknown]
  - Pyrexia [Unknown]
  - Decreased appetite [Unknown]
